FAERS Safety Report 9311524 (Version 4)
Quarter: 2013Q3

REPORT INFORMATION
  Report Type: Spontaneous
  Country: US (occurrence: US)
  Receive Date: 20130528
  Receipt Date: 20130812
  Transmission Date: 20140515
  Serious: Yes (Death, Hospitalization, Congenital Anomaly, Other)
  Sender: FDA-Public Use
  Company Number: US-BAXTER-2013BAX019057

PATIENT
  Age: 0 Day
  Sex: Female
  Weight: 5.39 kg

DRUGS (24)
  1. DIANEAL LOW CALCIUM [Suspect]
     Indication: PERITONEAL DIALYSIS
     Route: 033
     Dates: end: 20130621
  2. DIANEAL PD2 [Suspect]
     Indication: RENAL FAILURE
     Route: 033
     Dates: start: 2012
  3. DIANEAL PD2 [Suspect]
     Indication: RENAL FAILURE
     Route: 033
     Dates: start: 201211
  4. DIANEAL PD2 [Suspect]
     Indication: RENAL FAILURE
     Route: 033
     Dates: start: 2012
  5. ACETAMINOPHEN [Concomitant]
     Indication: IMMUNOGLOBULIN THERAPY
     Route: 048
  6. ACETAMINOPHEN [Concomitant]
     Indication: PYREXIA
  7. ACETAMINOPHEN [Concomitant]
     Indication: PAIN
  8. ACETAMINOPHEN [Concomitant]
     Indication: IRRITABILITY
  9. ASPIRIN [Concomitant]
     Indication: PRODUCT USED FOR UNKNOWN INDICATION
     Route: 048
  10. POLYCITRA-K [Concomitant]
     Indication: PRODUCT USED FOR UNKNOWN INDICATION
     Route: 048
  11. BICITRA [Concomitant]
     Indication: PRODUCT USED FOR UNKNOWN INDICATION
     Route: 048
  12. CATAPRES [Concomitant]
     Indication: PRODUCT USED FOR UNKNOWN INDICATION
     Route: 048
  13. CATAPRES [Concomitant]
     Route: 048
  14. NEORAL [Concomitant]
     Indication: PRODUCT USED FOR UNKNOWN INDICATION
     Route: 048
  15. BENADRYL [Concomitant]
     Indication: IMMUNOGLOBULIN THERAPY
     Route: 048
  16. FER-IN-SOL [Concomitant]
     Indication: PRODUCT USED FOR UNKNOWN INDICATION
     Route: 048
  17. PROCRIT [Concomitant]
     Indication: PRODUCT USED FOR UNKNOWN INDICATION
     Route: 065
  18. CARNITOR [Concomitant]
     Indication: PRODUCT USED FOR UNKNOWN INDICATION
     Route: 065
  19. MAGNESIUM SULFATE [Concomitant]
     Indication: PRODUCT USED FOR UNKNOWN INDICATION
     Route: 048
  20. POLY-VI-SOL [Concomitant]
     Indication: PRODUCT USED FOR UNKNOWN INDICATION
     Route: 048
  21. CELLCEPT [Concomitant]
     Indication: PRODUCT USED FOR UNKNOWN INDICATION
     Route: 048
  22. PROTONIX [Concomitant]
     Indication: PRODUCT USED FOR UNKNOWN INDICATION
     Route: 048
  23. ORAPRED [Concomitant]
     Indication: PRODUCT USED FOR UNKNOWN INDICATION
     Route: 048
  24. ORAPRED [Concomitant]
     Route: 048

REACTIONS (10)
  - Transplant failure [Fatal]
  - Septic shock [Fatal]
  - Multimorbidity [Fatal]
  - Heart disease congenital [Recovering/Resolving]
  - Crying [Unknown]
  - Peritonitis [Unknown]
  - Nasal congestion [Unknown]
  - Irritability [Unknown]
  - Cough [Unknown]
  - Vomiting [Unknown]
